FAERS Safety Report 5921252-2 (Version None)
Quarter: 2008Q4

REPORT INFORMATION
  Report Type: 
  Country: None (occurrence: None)
  Receive Date: 20081014
  Receipt Date: 20080926
  Transmission Date: 20090506
  Serious: Yes (Hospitalization)
  Sender: FDA-Public Use
  Company Number: FON_00001_2008

PATIENT
  Age: 19 Year
  Sex: Male
  Weight: 89.9936 kg

DRUGS (2)
  1. ROCALTROL [Suspect]
     Indication: THYROIDECTOMY
     Dosage: (1 UG QD ORAL)
     Route: 048
     Dates: start: 20010101, end: 20070501
  2. CALCIUM [Concomitant]

REACTIONS (6)
  - CARDIAC DISORDER [None]
  - DYSPNOEA [None]
  - MALAISE [None]
  - PALLOR [None]
  - PRODUCT QUALITY ISSUE [None]
  - SYNCOPE [None]
